FAERS Safety Report 10550956 (Version 1)
Quarter: 2014Q4

REPORT INFORMATION
  Report Type: Spontaneous
  Country: IT (occurrence: IT)
  Receive Date: 20141029
  Receipt Date: 20141029
  Transmission Date: 20150529
  Serious: Yes (Death)
  Sender: FDA-Public Use
  Company Number: IT-ACCORD-026626

PATIENT
  Age: 76 Year
  Sex: Male

DRUGS (3)
  1. FIRMAGON [Concomitant]
     Active Substance: DEGARELIX ACETATE
     Route: 023
  2. DOCETAXEL ACCORD [Suspect]
     Active Substance: DOCETAXEL
     Indication: PROSTATE CANCER
     Dosage: STRENGTH: 80 MG/4 ML.??ALSO RECEIVED DOCETAXEL ACCORD 20 MG/ML, BATCH: R00984, DOSE: 75 MG/KG
     Route: 041
     Dates: start: 20140930
  3. TAXOTERE [Suspect]
     Active Substance: DOCETAXEL
     Indication: PROSTATE CANCER
     Dosage: TOTAL 140 MG
     Dates: start: 20140930

REACTIONS (3)
  - Asthenia [Fatal]
  - Decreased appetite [Fatal]
  - Diarrhoea [Fatal]

NARRATIVE: CASE EVENT DATE: 20141010
